FAERS Safety Report 16999580 (Version 1)
Quarter: 2019Q4

REPORT INFORMATION
  Report Type: Spontaneous
  Country: AU (occurrence: AU)
  Receive Date: 20191106
  Receipt Date: 20191106
  Transmission Date: 20200122
  Serious: Yes (Hospitalization, Other)
  Sender: FDA-Public Use
  Company Number: NVSC2019AU023347

PATIENT
  Sex: Female

DRUGS (4)
  1. ZOLADEX [Suspect]
     Active Substance: GOSERELIN ACETATE
     Indication: PRODUCT USED FOR UNKNOWN INDICATION
     Dosage: UNK
     Route: 065
     Dates: start: 201812
  2. FEMARA [Suspect]
     Active Substance: LETROZOLE
     Indication: BREAST CANCER
     Dosage: UNK
     Route: 065
  3. TARGIN [Suspect]
     Active Substance: NALOXONE HYDROCHLORIDE\OXYCODONE HYDROCHLORIDE
     Indication: PRODUCT USED FOR UNKNOWN INDICATION
     Dosage: 5 MG
     Route: 065
  4. RIBOCICLIB. [Suspect]
     Active Substance: RIBOCICLIB
     Indication: BREAST CANCER
     Dosage: UNK
     Route: 065

REACTIONS (13)
  - Intervertebral disc protrusion [Unknown]
  - Arthralgia [Unknown]
  - Feeling abnormal [Unknown]
  - Memory impairment [Unknown]
  - Back pain [Unknown]
  - Nasopharyngitis [Unknown]
  - Spinal cord neoplasm [Unknown]
  - Breast mass [Unknown]
  - Breast cancer stage IV [Unknown]
  - Insomnia [Unknown]
  - Pruritus [Unknown]
  - Hot flush [Unknown]
  - Stress [Unknown]
